FAERS Safety Report 4486396-3 (Version None)
Quarter: 2004Q4

REPORT INFORMATION
  Report Type: 
  Country: None (occurrence: None)
  Receive Date: 20041022
  Receipt Date: 20041007
  Transmission Date: 20050328
  Serious: Yes (Hospitalization)
  Sender: FDA-Public Use
  Company Number: 205917

PATIENT
  Age: 44 Year
  Sex: Female
  Weight: 90.7194 kg

DRUGS (3)
  1. AVONEX [Suspect]
     Indication: MULTIPLE SCLEROSIS
     Dosage: 30 MCG QW IM
     Route: 030
     Dates: start: 19970101, end: 20030101
  2. AVONEX [Suspect]
     Indication: MULTIPLE SCLEROSIS
     Dosage: 30 MCG QW IM
     Route: 030
     Dates: start: 20030101
  3. CLONAZEPAM [Concomitant]

REACTIONS (13)
  - ARTHRITIS [None]
  - BALANCE DISORDER [None]
  - DIARRHOEA [None]
  - DYSARTHRIA [None]
  - FALL [None]
  - GAIT DISTURBANCE [None]
  - GALLBLADDER DISORDER [None]
  - HIP FRACTURE [None]
  - IMPLANT SITE IRRITATION [None]
  - INSOMNIA [None]
  - KELOID SCAR [None]
  - PAIN OF SKIN [None]
  - UNEQUAL LEG LENGTH ACQUIRED [None]
